FAERS Safety Report 7946554-X (Version None)
Quarter: 2011Q4

REPORT INFORMATION
  Report Type: 
  Country: None (occurrence: None)
  Receive Date: 20111122
  Receipt Date: 20111110
  Transmission Date: 20120403
  Serious: Yes (Hospitalization)
  Sender: FDA-Public Use
  Company Number: DSA_48167_2011

PATIENT
  Age: 87 Year
  Sex: Female

DRUGS (13)
  1. WARFARIN SODIUM [Concomitant]
  2. ZOLPIDEM TARTRATE [Concomitant]
  3. ENALAPRIL MALEATE [Suspect]
     Indication: MYOCARDIAL DEPRESSION
     Dosage: (5 MG QD ORAL)
     Route: 048
     Dates: end: 20110919
  4. METHOTREXATE [Concomitant]
  5. ALENDRONATE SODIUM [Concomitant]
  6. FUROSEMIDE [Concomitant]
  7. MOVICOL /01625101/ [Concomitant]
  8. FOLACIN /00024201/ [Concomitant]
  9. PREDNISOLONE [Concomitant]
  10. EMCONCOR (EMCONCOR-BISOPROLOL FUMARATE) 2.5 MG (NOT SPECIFIED) [Suspect]
     Indication: MYOCARDIAL DEPRESSION
     Dosage: (2.5 MG QD ORAL)
     Route: 048
     Dates: end: 20110919
  11. ACETAMINOPHEN [Concomitant]
  12. CITALOPRAM [Concomitant]
  13. OMEPRAZOLE [Concomitant]

REACTIONS (1)
  - BRADYCARDIA [None]
